FAERS Safety Report 7237359-6 (Version None)
Quarter: 2011Q1

REPORT INFORMATION
  Report Type: 
  Country: None (occurrence: None)
  Receive Date: 20110121
  Receipt Date: 20110111
  Transmission Date: 20110831
  Serious: Yes (Other)
  Sender: FDA-Public Use
  Company Number: JP-BRISTOL-MYERS SQUIBB COMPANY-15412307

PATIENT
  Age: 56 Year
  Sex: Female

DRUGS (4)
  1. ABILIFY [Suspect]
     Indication: SCHIZOPHRENIA
     Route: 048
  2. RISPERIDONE [Concomitant]
     Dosage: NOOF ISOLATIONS: 3-10 TIMES/YEAR
  3. PEROSPIRONE [Concomitant]
     Dosage: NOOF ISOLATIONS: 27 TIMES/YEAR
  4. LEVOMEPROMAZINE MALEATE [Concomitant]
     Dosage: NOOF ISOLATIONS: 3-10 TIMES/YEAR

REACTIONS (2)
  - POLYDIPSIA [None]
  - WATER INTOXICATION [None]
